FAERS Safety Report 8951664 (Version 3)
Quarter: 2013Q3

REPORT INFORMATION
  Report Type: Spontaneous
  Country: US (occurrence: US)
  Receive Date: 20121204
  Receipt Date: 20130821
  Transmission Date: 20140515
  Serious: Yes (Other)
  Sender: FDA-Public Use
  Company Number: CHPA2012US024101

PATIENT
  Age: 75 Year
  Sex: Female

DRUGS (2)
  1. EXCEDRIN PM [Suspect]
     Indication: INSOMNIA
     Dosage: 1 DF, AT BEDTIME, TWICE PER WEEK
     Route: 048
     Dates: start: 198906, end: 1989
  2. EXCEDRIN PM [Suspect]
     Dosage: 1 DF, QHS
     Route: 048
     Dates: start: 1989, end: 201212

REACTIONS (3)
  - Drug dependence [Recovered/Resolved]
  - Incorrect drug administration duration [Unknown]
  - Underdose [Unknown]
